FAERS Safety Report 22198667 (Version 2)
Quarter: 2023Q2

REPORT INFORMATION
  Report Type: Spontaneous
  Country: LV (occurrence: None)
  Receive Date: 20230411
  Receipt Date: 20230504
  Transmission Date: 20230721
  Serious: Yes (Hospitalization)
  Sender: FDA-Public Use
  Company Number: 2023A080141

PATIENT
  Age: 22 Year
  Sex: Male

DRUGS (12)
  1. QUETIAPINE [Suspect]
     Active Substance: QUETIAPINE
     Indication: Insomnia
     Dosage: BEDTIME
     Route: 048
     Dates: start: 202104
  2. HALOPERIDOL [Concomitant]
     Active Substance: HALOPERIDOL
     Indication: Schizophrenia
     Route: 030
     Dates: start: 202003
  3. HALOPERIDOL [Concomitant]
     Active Substance: HALOPERIDOL
     Indication: Schizophrenia
     Route: 030
     Dates: start: 202104
  4. HALOPERIDOL [Concomitant]
     Active Substance: HALOPERIDOL
     Indication: Schizophrenia
     Route: 030
     Dates: start: 202104
  5. DIAZEPAM [Concomitant]
     Active Substance: DIAZEPAM
     Route: 030
  6. DIAZEPAM [Concomitant]
     Active Substance: DIAZEPAM
     Route: 030
  7. RISPERIDONE [Concomitant]
     Active Substance: RISPERIDONE
     Indication: Schizophrenia
  8. TRIHEXYPHENIDYL [Concomitant]
     Active Substance: TRIHEXYPHENIDYL
  9. CARIPRAZINE [Concomitant]
     Active Substance: CARIPRAZINE
  10. OLANZAPINE [Concomitant]
     Active Substance: OLANZAPINE
     Dates: start: 202104
  11. OLANZAPINE [Concomitant]
     Active Substance: OLANZAPINE
     Dates: start: 202104
  12. ARIPIPRAZOLE [Concomitant]
     Active Substance: ARIPIPRAZOLE
     Dates: start: 202105

REACTIONS (2)
  - Off label use [Unknown]
  - Drug ineffective for unapproved indication [Unknown]
